FAERS Safety Report 25957323 (Version 1)
Quarter: 2025Q4

REPORT INFORMATION
  Report Type: Spontaneous
  Country: US (occurrence: US)
  Receive Date: 20251024
  Receipt Date: 20251024
  Transmission Date: 20260117
  Serious: No
  Sender: SEPTODONT
  Company Number: US-SEPTODONT-2024019209

PATIENT

DRUGS (5)
  1. SEPTOCAINE [Suspect]
     Active Substance: ARTICAINE HYDROCHLORIDE\EPINEPHRINE BITARTRATE
     Indication: Dental local anaesthesia
     Dosage: 1.8 ML VOLUME.
     Route: 004
  2. SEPTOCAINE [Suspect]
     Active Substance: ARTICAINE HYDROCHLORIDE\EPINEPHRINE BITARTRATE
     Indication: Dental local anaesthesia
     Dosage: 3.6 ML VOLUME.
     Route: 004
  3. 20% benzocaine [Concomitant]
     Dosage: TOPICAL ANESTHETIC.
  4. Luer-Loc 5-mL syringe (Becton, Dickinson, and Co) [Concomitant]
  5. Monoject Needle 27 Ga Short [Concomitant]

REACTIONS (2)
  - Product dispensing error [Unknown]
  - Drug ineffective [Unknown]
